FAERS Safety Report 6964906-1 (Version None)
Quarter: 2010Q3

REPORT INFORMATION
  Report Type: 
  Country: None (occurrence: None)
  Receive Date: 20100903
  Receipt Date: 20100826
  Transmission Date: 20110219
  Serious: Yes (Hospitalization)
  Sender: FDA-Public Use
  Company Number: FR-ELI_LILLY_AND_COMPANY-FR201008007501

PATIENT
  Sex: Male

DRUGS (9)
  1. BYETTA [Suspect]
     Dosage: 5 UG, 2/D
     Route: 058
     Dates: start: 20100201
  2. BYETTA [Suspect]
     Dosage: 10 UG, 2/D
     Route: 058
     Dates: start: 20100501, end: 20100530
  3. GLUCOPHAGE [Concomitant]
     Dosage: 100 MG, 3/D
     Route: 048
     Dates: end: 20100530
  4. CRESTOR [Concomitant]
     Dosage: 10 MG, DAILY (1/D)
     Route: 048
     Dates: end: 20100530
  5. PLAVIX [Concomitant]
     Dosage: 10 MG, DAILY (1/D)
     Dates: end: 20100530
  6. TRIATEC [Concomitant]
     Dosage: 10 MG, DAILY (1/D)
     Route: 048
     Dates: end: 20100530
  7. NOVONORM [Concomitant]
     Dosage: UNK, UNKNOWN
     Dates: end: 20100530
  8. CELESTONE [Concomitant]
     Dosage: 2 MG, UNK
     Dates: end: 20100530
  9. OROCAL [Concomitant]
     Dosage: UNK, UNKNOWN
     Dates: end: 20100530

REACTIONS (1)
  - PANCREATITIS [None]
